FAERS Safety Report 11397675 (Version 2)
Quarter: 2015Q3

REPORT INFORMATION
  Report Type: Report from Study
  Country: US (occurrence: US)
  Receive Date: 20150819
  Receipt Date: 20150904
  Transmission Date: 20151125
  Serious: Yes (Death, Life-Threatening, Hospitalization)
  Sender: FDA-Public Use
  Company Number: US-ACTELION-A-US2015-116767

PATIENT
  Age: 19 Month
  Sex: Female

DRUGS (13)
  1. POTASSIUM CHLORIDE. [Concomitant]
     Active Substance: POTASSIUM CHLORIDE
     Dosage: 4 MEQ, Q12HRS
  2. POLY-VI-SOL [Concomitant]
     Dosage: 1 ML, QD
  3. TRACLEER [Suspect]
     Active Substance: BOSENTAN
     Indication: PULMONARY HYPERTENSION
     Dosage: 15.6 MG, BID
     Route: 048
     Dates: start: 2015, end: 20150612
  4. CAPTOPRIL. [Concomitant]
     Active Substance: CAPTOPRIL
     Dosage: 1.6 MG,EVERY 8 HRS.
  5. LOVENOX [Concomitant]
     Active Substance: ENOXAPARIN SODIUM
  6. TRACLEER [Suspect]
     Active Substance: BOSENTAN
     Dosage: 20 MG, BID
     Route: 048
     Dates: start: 20150613
  7. METOPROLOL [Concomitant]
     Active Substance: METOPROLOL
     Dosage: 4 MG, BID
  8. FUROSEMIDE. [Concomitant]
     Active Substance: FUROSEMIDE
     Dosage: 4 MG, Q6HRS
  9. SILDENAFIL. [Concomitant]
     Active Substance: SILDENAFIL
     Dosage: 12 MG, Q6HRS
  10. CHLOROTHIAZIDE. [Concomitant]
     Active Substance: CHLOROTHIAZIDE
     Dosage: 70 MG, QD
  11. DIGOXIN. [Concomitant]
     Active Substance: DIGOXIN
     Dosage: 30 MCG, BID
  12. ENOXAPARIN [Concomitant]
     Active Substance: ENOXAPARIN
     Dosage: 13 MG, BID
  13. OMEPRAZOL [Concomitant]
     Active Substance: OMEPRAZOLE
     Dosage: 8 MG, BID

REACTIONS (8)
  - Pleural effusion [Not Recovered/Not Resolved]
  - Dyspnoea [Not Recovered/Not Resolved]
  - Respiratory distress [Recovering/Resolving]
  - Oxygen saturation decreased [Not Recovered/Not Resolved]
  - Pulmonary hypertension [Fatal]
  - Infection [Unknown]
  - Cardiac disorder [Fatal]
  - Agitation [Recovering/Resolving]

NARRATIVE: CASE EVENT DATE: 20150331
